FAERS Safety Report 14992300 (Version 1)
Quarter: 2018Q2

REPORT INFORMATION
  Report Type: Spontaneous
  Country: None (occurrence: ES)
  Receive Date: 20180608
  Receipt Date: 20180608
  Transmission Date: 20180711
  Serious: Yes (Disabling)
  Sender: FDA-Public Use
  Company Number: ES-ALSI-201800366

PATIENT
  Sex: Female

DRUGS (1)
  1. OXYGEN. [Suspect]
     Active Substance: OXYGEN
     Indication: ACCIDENTAL EXPOSURE TO PRODUCT
     Route: 050

REACTIONS (3)
  - Foot fracture [Not Recovered/Not Resolved]
  - Accidental exposure to product [Not Recovered/Not Resolved]
  - Product quality issue [Not Recovered/Not Resolved]
